FAERS Safety Report 5446439-7 (Version None)
Quarter: 2007Q3

REPORT INFORMATION
  Report Type: 
  Country: None (occurrence: None)
  Receive Date: 20070907
  Receipt Date: 20070828
  Transmission Date: 20080115
  Serious: Yes (Hospitalization)
  Sender: FDA-Public Use
  Company Number: CM-MERCK-0708USA05390

PATIENT
  Age: 27 Year
  Sex: Female

DRUGS (1)
  1. STROMECTOL [Suspect]
     Route: 048
     Dates: start: 20070727, end: 20070727

REACTIONS (6)
  - DIARRHOEA [None]
  - GASTROINTESTINAL DISORDER [None]
  - HEADACHE [None]
  - PAIN [None]
  - PYREXIA [None]
  - VOMITING [None]
